FAERS Safety Report 14746731 (Version 1)
Quarter: 2018Q2

REPORT INFORMATION
  Report Type: Spontaneous
  Country: IE (occurrence: US)
  Receive Date: 20180411
  Receipt Date: 20180411
  Transmission Date: 20180711
  Serious: Yes (Other)
  Sender: FDA-Public Use
  Company Number: IE-BAYER-2017-077700

PATIENT
  Age: 32 Year

DRUGS (1)
  1. CIPRO [Suspect]
     Active Substance: CIPROFLOXACIN HYDROCHLORIDE
     Dosage: 500 MG, ONCE

REACTIONS (3)
  - General physical health deterioration [Not Recovered/Not Resolved]
  - Impaired quality of life [None]
  - Poisoning [None]
